FAERS Safety Report 9155709 (Version 2)
Quarter: 2013Q2

REPORT INFORMATION
  Report Type: Spontaneous
  Country: IT (occurrence: IT)
  Receive Date: 20130311
  Receipt Date: 20130424
  Transmission Date: 20140414
  Serious: Yes (Hospitalization)
  Sender: FDA-Public Use
  Company Number: IT-PFIZER INC-2013081257

PATIENT
  Age: 76 Year
  Sex: Female

DRUGS (5)
  1. TRIATEC [Suspect]
     Indication: HYPERTENSION
     Dosage: 1 DF, DAILY
     Route: 048
     Dates: start: 20130101
  2. LASIX [Suspect]
     Indication: HYPERTENSION
     Dosage: 1 DF, DAILY
     Route: 048
     Dates: start: 20130101, end: 20130222
  3. ALDACTONE [Suspect]
     Indication: HYPERTENSION
     Dosage: 1 DF, DAILY (100 MG TABLET)
     Route: 048
     Dates: start: 20130101
  4. NEXIUM [Concomitant]
     Dosage: UNK
  5. CORDARONE [Concomitant]
     Dosage: UNK

REACTIONS (2)
  - Hyponatraemia [Recovering/Resolving]
  - Hyperkalaemia [Recovering/Resolving]
